FAERS Safety Report 25771227 (Version 1)
Quarter: 2025Q3

REPORT INFORMATION
  Report Type: Spontaneous
  Country: US (occurrence: US)
  Receive Date: 20250908
  Receipt Date: 20250908
  Transmission Date: 20251020
  Serious: No
  Sender: DOMPE FARMACEUTICI
  Company Number: US-FARMAPROD-202504-1108

PATIENT
  Age: 61 Year
  Sex: Female
  Weight: 100.15 kg

DRUGS (20)
  1. OXERVATE [Suspect]
     Active Substance: CENEGERMIN-BKBJ
     Indication: Neurotrophic keratopathy
     Route: 047
     Dates: start: 20250327
  2. FLUOROMETHOLONE [Concomitant]
     Active Substance: FLUOROMETHOLONE
  3. DAILY MULTIVITAMIN WITH D3 [Concomitant]
  4. ALBUTEROL SULFATE [Concomitant]
     Active Substance: ALBUTEROL SULFATE
  5. TOPAMAX [Concomitant]
     Active Substance: TOPIRAMATE
  6. HYDROMORPHONE HCL [Concomitant]
     Active Substance: HYDROMORPHONE HYDROCHLORIDE
  7. BETAMETHASONE CLOTRIMAZOLE [Concomitant]
     Active Substance: BETAMETHASONE DIPROPIONATE\CLOTRIMAZOLE
  8. DESIPRAMINE HYDROCHLORIDE [Concomitant]
     Active Substance: DESIPRAMINE HYDROCHLORIDE
  9. OZEMPIC [Concomitant]
     Active Substance: SEMAGLUTIDE
  10. LORAZEPAM [Concomitant]
     Active Substance: LORAZEPAM
  11. ATIVAN [Concomitant]
     Active Substance: LORAZEPAM
  12. GABAPENTIN [Concomitant]
     Active Substance: GABAPENTIN
  13. ATORVASTATIN CALCIUM [Concomitant]
     Active Substance: ATORVASTATIN CALCIUM
  14. LANSOPRAZOLE [Concomitant]
     Active Substance: LANSOPRAZOLE
  15. CALCIUM [Concomitant]
     Active Substance: CALCIUM
  16. SOLIFENACIN SUCCINATE [Concomitant]
     Active Substance: SOLIFENACIN SUCCINATE
  17. TOPIRAMATE [Concomitant]
     Active Substance: TOPIRAMATE
  18. OXYCODONE AND ACETAMINOPHEN [Concomitant]
     Active Substance: ACETAMINOPHEN\OXYCODONE HYDROCHLORIDE
  19. VITAMINS [Concomitant]
     Active Substance: VITAMINS
  20. ZOLOFT [Concomitant]
     Active Substance: SERTRALINE HYDROCHLORIDE

REACTIONS (3)
  - Eyelid pain [Unknown]
  - Eye pain [Unknown]
  - Device use issue [Unknown]

NARRATIVE: CASE EVENT DATE: 20250330
